FAERS Safety Report 23555018 (Version 8)
Quarter: 2024Q4

REPORT INFORMATION
  Report Type: Spontaneous
  Country: US (occurrence: US)
  Receive Date: 20240222
  Receipt Date: 20241227
  Transmission Date: 20250115
  Serious: No
  Sender: BRISTOL-MYERS SQUIBB COMPANY
  Company Number: US-BRISTOL-MYERS SQUIBB COMPANY-2024-028647

PATIENT
  Age: 70 Year
  Sex: Female

DRUGS (8)
  1. SPRYCEL [Suspect]
     Active Substance: DASATINIB
     Indication: Chronic myeloid leukaemia
     Route: 048
     Dates: start: 202309
  2. SPRYCEL [Suspect]
     Active Substance: DASATINIB
     Route: 048
     Dates: start: 202310
  3. SPRYCEL [Suspect]
     Active Substance: DASATINIB
     Route: 048
     Dates: start: 202310
  4. SPRYCEL [Suspect]
     Active Substance: DASATINIB
     Route: 048
     Dates: start: 202310
  5. SPRYCEL [Suspect]
     Active Substance: DASATINIB
     Dosage: FREQUENCY: EVERY OTHER DAY
     Route: 048
  6. SPRYCEL [Suspect]
     Active Substance: DASATINIB
     Route: 048
     Dates: start: 202310
  7. SPRYCEL [Suspect]
     Active Substance: DASATINIB
     Dosage: STRENGTH-20 MG
     Route: 048
     Dates: start: 202310
  8. TASIGNA [Suspect]
     Active Substance: NILOTINIB
     Indication: Product used for unknown indication

REACTIONS (11)
  - Drug hypersensitivity [Unknown]
  - Rash pruritic [Not Recovered/Not Resolved]
  - Diarrhoea [Unknown]
  - Skin burning sensation [Unknown]
  - Dizziness [Unknown]
  - Fatigue [Recovering/Resolving]
  - Migraine with aura [Unknown]
  - Transient aphasia [Unknown]
  - Off label use [Unknown]
  - Nausea [Unknown]
  - Rash [Recovering/Resolving]
